FAERS Safety Report 5110793-6 (Version None)
Quarter: 2006Q3

REPORT INFORMATION
  Report Type: 
  Country: None (occurrence: None)
  Receive Date: 20060919
  Receipt Date: 20060906
  Transmission Date: 20061208
  Serious: Yes (Hospitalization, Other)
  Sender: FDA-Public Use
  Company Number: 2006064121

PATIENT
  Age: 33 Year
  Sex: Female
  Weight: 64.4108 kg

DRUGS (2)
  1. BEXTRA [Suspect]
     Indication: ABDOMINAL PAIN
     Dosage: 40 MG (20 MG, 2 IN 1 D), ORAL
     Route: 048
     Dates: start: 20010101
  2. CELEBREX [Suspect]
     Indication: DRUG USE FOR UNKNOWN INDICATION
     Dosage: 200 MG( 200 MG, 1 IN 1 D)
     Dates: start: 20010101

REACTIONS (21)
  - ABASIA [None]
  - ACNE [None]
  - BLOOD THYROID STIMULATING HORMONE ABNORMAL [None]
  - CHEST PAIN [None]
  - COUGH [None]
  - DIZZINESS [None]
  - DYSMENORRHOEA [None]
  - DYSPAREUNIA [None]
  - ENDOMETRIOSIS [None]
  - GALLBLADDER DISORDER [None]
  - HEADACHE [None]
  - IMPAIRED HEALING [None]
  - PELVIC PAIN [None]
  - POST PROCEDURAL HAEMORRHAGE [None]
  - PYODERMA [None]
  - ROAD TRAFFIC ACCIDENT [None]
  - SCAR [None]
  - SKIN DISORDER [None]
  - STAPHYLOCOCCAL INFECTION [None]
  - UTERINE PAIN [None]
  - VAGINAL HAEMORRHAGE [None]
